FAERS Safety Report 21198360 (Version 2)
Quarter: 2022Q3

REPORT INFORMATION
  Report Type: Spontaneous
  Country: US (occurrence: US)
  Receive Date: 20220811
  Receipt Date: 20220826
  Transmission Date: 20221027
  Serious: Yes (Life-Threatening, Hospitalization)
  Sender: FDA-Public Use
  Company Number: US-TEVA-2022-US-2062718

PATIENT
  Age: 61 Year
  Sex: Female

DRUGS (1)
  1. DEXAMETHASONE [Suspect]
     Active Substance: DEXAMETHASONE
     Indication: Steroid therapy
     Route: 065

REACTIONS (7)
  - Nocardiosis [Recovering/Resolving]
  - Bronchopulmonary aspergillosis [Recovering/Resolving]
  - Aneurysm ruptured [Recovering/Resolving]
  - Haemorrhage [Recovering/Resolving]
  - Respiratory failure [Recovering/Resolving]
  - Intracranial infection [Recovering/Resolving]
  - Fungal infection [Recovering/Resolving]
